FAERS Safety Report 5415072-5 (Version None)
Quarter: 2007Q3

REPORT INFORMATION
  Report Type: 
  Country: None (occurrence: None)
  Receive Date: 20070815
  Receipt Date: 20070613
  Transmission Date: 20080115
  Serious: No
  Sender: FDA-Public Use
  Company Number: A0651665A

PATIENT
  Age: 58 Year
  Sex: Male

DRUGS (9)
  1. COREG CR [Suspect]
     Dosage: 40MG PER DAY
     Route: 048
     Dates: start: 20070401
  2. COUMADIN [Concomitant]
  3. LISINOPRIL [Concomitant]
  4. ZOCOR [Concomitant]
  5. ASPIRIN [Concomitant]
  6. PLAVIX [Concomitant]
  7. ZETIA [Concomitant]
  8. ALLOPURINOL [Concomitant]
  9. AMIODARONE HCL [Concomitant]

REACTIONS (3)
  - DIZZINESS [None]
  - PHARMACEUTICAL PRODUCT COMPLAINT [None]
  - WEIGHT INCREASED [None]
